FAERS Safety Report 11334685 (Version 1)
Quarter: 2015Q3

REPORT INFORMATION
  Report Type: Spontaneous
  Country: US (occurrence: US)
  Receive Date: 20150804
  Receipt Date: 20150804
  Transmission Date: 20151125
  Serious: No
  Sender: FDA-Public Use
  Company Number: US-TEVA-560054USA

PATIENT
  Age: 58 Year
  Sex: Female

DRUGS (2)
  1. VENLAFAXINE [Suspect]
     Active Substance: VENLAFAXINE HYDROCHLORIDE
     Indication: HOT FLUSH
     Dates: start: 20150429, end: 20150429
  2. VENLAFAXINE [Suspect]
     Active Substance: VENLAFAXINE HYDROCHLORIDE
     Indication: NIGHT SWEATS

REACTIONS (5)
  - Anorectal swelling [Unknown]
  - Dry mouth [Unknown]
  - Haemorrhoids [Unknown]
  - Rash [Unknown]
  - Glossitis [Unknown]

NARRATIVE: CASE EVENT DATE: 20150429
